FAERS Safety Report 23676417 (Version 1)
Quarter: 2024Q1

REPORT INFORMATION
  Report Type: Spontaneous
  Country: US (occurrence: US)
  Receive Date: 20240327
  Receipt Date: 20240327
  Transmission Date: 20240409
  Serious: No
  Sender: FDA-Public Use
  Company Number: US-002147023-NVSC2023US174504

PATIENT
  Sex: Female
  Weight: 61 kg

DRUGS (3)
  1. COSENTYX [Suspect]
     Active Substance: SECUKINUMAB
     Indication: Psoriatic arthropathy
     Dosage: 300 MG (MAINTENANCE DOSE: INJECT 300 MG SUBCUTANEOUSLY EVERY 14 DAYS)
     Route: 058
     Dates: start: 202203
  2. COSENTYX [Suspect]
     Active Substance: SECUKINUMAB
     Dosage: 300 MG (MAINTENANCE DOSE: INJECT 300 MG SUBCUTANEOUSLY EVERY 14 DAYS)
     Route: 058
     Dates: start: 202203
  3. METHOTREXATE [Suspect]
     Active Substance: METHOTREXATE
     Indication: Product used for unknown indication
     Dosage: 300 MG, Q2W
     Route: 058
     Dates: start: 202303

REACTIONS (3)
  - Drug ineffective [Recovering/Resolving]
  - Back pain [Not Recovered/Not Resolved]
  - Inappropriate schedule of product administration [Unknown]
